FAERS Safety Report 12256712 (Version 1)
Quarter: 2016Q2

REPORT INFORMATION
  Report Type: Spontaneous
  Country: US (occurrence: None)
  Receive Date: 20160411
  Receipt Date: 20160411
  Transmission Date: 20160815
  Serious: Yes (Life-Threatening, Hospitalization)
  Sender: FDA-Public Use
  Company Number: None

PATIENT
  Age: 48 Year
  Sex: Female
  Weight: 68.04 kg

DRUGS (1)
  1. XANAX [Suspect]
     Active Substance: ALPRAZOLAM
     Indication: MUSCLE TIGHTNESS
     Route: 048

REACTIONS (19)
  - Intentional self-injury [None]
  - Asthenia [None]
  - Loss of consciousness [None]
  - Somnolence [None]
  - Fall [None]
  - Scar [None]
  - Alcohol use [None]
  - Hypoaesthesia [None]
  - Suicide attempt [None]
  - Movement disorder [None]
  - Haemorrhage [None]
  - Apparent death [None]
  - Device use error [None]
  - Wound infection [None]
  - Face injury [None]
  - Drug hypersensitivity [None]
  - Laceration [None]
  - Intentional overdose [None]
  - Bladder disorder [None]

NARRATIVE: CASE EVENT DATE: 20140929
